FAERS Safety Report 4959697-X (Version None)
Quarter: 2006Q1

REPORT INFORMATION
  Report Type: 
  Country: None (occurrence: None)
  Receive Date: 20060328
  Receipt Date: 20060313
  Transmission Date: 20060701
  Serious: Yes (Other)
  Sender: FDA-Public Use
  Company Number: 2006036069

PATIENT
  Age: 32 Year
  Sex: Male

DRUGS (2)
  1. ZITHROMAX [Suspect]
     Indication: ILL-DEFINED DISORDER
  2. CLOZAPINE [Suspect]
     Indication: ILL-DEFINED DISORDER

REACTIONS (1)
  - GRANULOCYTOPENIA [None]
